FAERS Safety Report 18603528 (Version 1)
Quarter: 2020Q4

REPORT INFORMATION
  Report Type: Spontaneous
  Country: US (occurrence: US)
  Receive Date: 20201117
  Receipt Date: 20201117
  Transmission Date: 20210114
  Serious: Yes (Death)
  Sender: FDA-Public Use
  Company Number: None

PATIENT
  Age: 7 Decade
  Sex: Female

DRUGS (5)
  1. ASPIRIN. [Suspect]
     Active Substance: ASPIRIN
  2. HEPARIN [Suspect]
     Active Substance: HEPARIN SODIUM
  3. ENOXAPARIN [Suspect]
     Active Substance: ENOXAPARIN
  4. DALTEPARIN [Suspect]
     Active Substance: DALTEPARIN
  5. PIPERACILLIN AND TAZOBACTAM [Suspect]
     Active Substance: PIPERACILLIN SODIUM\TAZOBACTAM SODIUM
     Indication: COVID-19
     Dates: start: 2020

REACTIONS (7)
  - Aphasia [None]
  - Haemodynamic instability [None]
  - Ischaemic stroke [None]
  - Cardio-respiratory arrest [None]
  - Hemiparesis [None]
  - Segmented hyalinising vasculitis [None]
  - Unintentional use for unapproved indication [None]
